FAERS Safety Report 7713886-X (Version None)
Quarter: 2011Q3

REPORT INFORMATION
  Report Type: 
  Country: None (occurrence: None)
  Receive Date: 20110826
  Receipt Date: 20110815
  Transmission Date: 20111222
  Serious: Yes (Hospitalization)
  Sender: FDA-Public Use
  Company Number: US-CELGENEUS-163-21880-11052956

PATIENT
  Sex: Female
  Weight: 70.22 kg

DRUGS (5)
  1. NEUPOGEN [Concomitant]
     Route: 065
  2. REVLIMID [Suspect]
     Dosage: 10 MILLIGRAM
     Route: 048
     Dates: start: 20110128, end: 20110518
  3. REVLIMID [Suspect]
     Dosage: 5 MILLIGRAM
     Route: 048
     Dates: start: 20110501, end: 20110601
  4. LEVOXYL [Concomitant]
     Indication: THYROID DISORDER
     Dosage: 50 MICROGRAM
     Route: 065
  5. REVLIMID [Suspect]
     Indication: MULTIPLE MYELOMA
     Dosage: 5 MILLIGRAM
     Route: 048
     Dates: start: 20100901

REACTIONS (6)
  - DEHYDRATION [None]
  - BLOOD COUNT ABNORMAL [None]
  - HYPOTENSION [None]
  - RED BLOOD CELL COUNT DECREASED [None]
  - WHITE BLOOD CELL COUNT DECREASED [None]
  - INTESTINAL OBSTRUCTION [None]
